FAERS Safety Report 9132403 (Version 2)
Quarter: 2013Q2

REPORT INFORMATION
  Report Type: Spontaneous
  Country: FR (occurrence: FR)
  Receive Date: 20130301
  Receipt Date: 20130405
  Transmission Date: 20140414
  Serious: Yes (Hospitalization)
  Sender: FDA-Public Use
  Company Number: FR-ROCHE-1196186

PATIENT
  Age: 50 Year
  Sex: Female

DRUGS (14)
  1. INVIRASE [Suspect]
     Indication: HIV INFECTION
     Route: 048
     Dates: start: 20130208, end: 20130211
  2. FOSCAVIR [Suspect]
     Indication: HIV INFECTION
     Route: 042
     Dates: start: 20130118, end: 20130209
  3. PREZISTA [Suspect]
     Indication: HIV INFECTION
     Route: 048
     Dates: start: 20130208, end: 20130211
  4. PREZISTA [Suspect]
     Route: 048
     Dates: start: 20130217
  5. NORVIR [Suspect]
     Indication: HIV INFECTION
     Route: 048
     Dates: start: 20130208, end: 20130211
  6. DOLUTEGRAVIR [Suspect]
     Indication: HIV INFECTION
     Route: 048
     Dates: start: 20130208, end: 20130211
  7. KIVEXA [Concomitant]
  8. VIDEX [Concomitant]
  9. CELSENTRI [Concomitant]
  10. BACTRIM [Concomitant]
  11. UVEDOSE [Concomitant]
  12. MOPRAL (FRANCE) [Concomitant]
  13. RETROVIR [Concomitant]
     Route: 065
  14. D4T [Concomitant]

REACTIONS (1)
  - Renal failure acute [Recovering/Resolving]
